FAERS Safety Report 10189289 (Version 1)
Quarter: 2014Q2

REPORT INFORMATION
  Report Type: Spontaneous
  Country: IT (occurrence: None)
  Receive Date: 20140520
  Receipt Date: 20140520
  Transmission Date: 20141212
  Serious: Yes (Other)
  Sender: FDA-Public Use
  Company Number: FK201401540

PATIENT
  Age: 86 Year
  Sex: Female

DRUGS (8)
  1. CEFTRIAXON [Suspect]
     Indication: GENITAL ABSCESS
     Route: 042
     Dates: start: 20131129, end: 20131208
  2. SINTROM (ACENOCOUMAROL) [Suspect]
     Indication: ATRIAL FIBRILLATION
     Route: 048
     Dates: start: 20090810, end: 20131209
  3. AUGMENTIN [Suspect]
     Indication: GENITAL ABSCESS
     Route: 048
     Dates: start: 20131202, end: 20131210
  4. LASIX (FUROSEMIDE) [Concomitant]
  5. MICARDIS (TELMISARTAN) [Concomitant]
  6. KANRENOL [Concomitant]
  7. BISOPROLOL HEMIFUMARATE [Concomitant]
  8. METFORMIN HYDROCHLORIDE [Concomitant]

REACTIONS (2)
  - Drug interaction [None]
  - International normalised ratio increased [None]
